FAERS Safety Report 9766836 (Version 1)
Quarter: 2013Q4

REPORT INFORMATION
  Report Type: Spontaneous
  Country: US (occurrence: US)
  Receive Date: 20131217
  Receipt Date: 20131217
  Transmission Date: 20140711
  Serious: Yes (Hospitalization)
  Sender: FDA-Public Use
  Company Number: US-GLAXOSMITHKLINE-A1033888A

PATIENT
  Age: 69 Year
  Sex: Female

DRUGS (1)
  1. VOTRIENT [Suspect]
     Indication: THYROID CANCER
     Dosage: 800MG PER DAY
     Route: 065

REACTIONS (7)
  - Adverse event [Unknown]
  - Therapy cessation [Unknown]
  - Non-cardiac chest pain [Unknown]
  - Cardiac discomfort [Not Recovered/Not Resolved]
  - Fatigue [Unknown]
  - Feeling abnormal [Unknown]
  - Derealisation [Unknown]
